FAERS Safety Report 24264586 (Version 4)
Quarter: 2024Q4

REPORT INFORMATION
  Report Type: Spontaneous
  Country: US (occurrence: US)
  Receive Date: 20240829
  Receipt Date: 20241122
  Transmission Date: 20250115
  Serious: Yes (Hospitalization, Other)
  Sender: ASTELLAS
  Company Number: US-ASTELLAS-2024-AER-002214

PATIENT
  Age: 76 Year
  Sex: Female

DRUGS (6)
  1. GILTERITINIB [Suspect]
     Active Substance: GILTERITINIB
     Indication: Acute myeloid leukaemia
     Dosage: UNKNOWN DOSE AND FREQUENCY CYCLE 1
     Route: 065
     Dates: start: 20230901
  2. GILTERITINIB [Suspect]
     Active Substance: GILTERITINIB
     Dosage: CYCLE 2
     Route: 065
     Dates: start: 20230925
  3. GILTERITINIB [Suspect]
     Active Substance: GILTERITINIB
     Dosage: REDUCED-DOSE GILTERITINIB (3RD MONTH OF GILTERITINIB).
     Route: 065
     Dates: start: 20231030
  4. VENETOCLAX [Suspect]
     Active Substance: VENETOCLAX
     Indication: Acute myeloid leukaemia
     Dosage: UNKNOWN DOSE AND FREQUENCY (CYCLE 1 VENETOCLAX14 + ENASIDENIB)
     Route: 065
     Dates: start: 20231220
  5. ENASIDENIB [Suspect]
     Active Substance: ENASIDENIB
     Indication: Acute myeloid leukaemia
     Dosage: UNKNOWN DOSE AND FREQUENCY (CYCLE 1 ENASIDENIB WITH REDUCED-DOSE GILTERITINIB (3RD MONTH OF GILTERIT
     Route: 065
     Dates: start: 20231030
  6. AZACITIDINE [Suspect]
     Active Substance: AZACITIDINE
     Indication: Product used for unknown indication
     Dosage: UNKNOWN DOSE AND FREQUENCY (CYCLE 2 OF GILTERITINIB + 3 DAYS OF AZACITADINE 75MG/M2 INJECTIONS)
     Route: 065
     Dates: start: 20230925

REACTIONS (5)
  - Differentiation syndrome [Unknown]
  - Febrile neutropenia [Unknown]
  - Febrile neutropenia [Recovering/Resolving]
  - Off label use [Unknown]
  - Product use issue [Unknown]

NARRATIVE: CASE EVENT DATE: 20231130
